FAERS Safety Report 15656763 (Version 1)
Quarter: 2018Q4

REPORT INFORMATION
  Report Type: Spontaneous
  Country: US (occurrence: US)
  Receive Date: 20181126
  Receipt Date: 20181126
  Transmission Date: 20190205
  Serious: Yes (Other)
  Sender: FDA-Public Use
  Company Number: None

PATIENT
  Age: 47 Year
  Sex: Female
  Weight: 56.7 kg

DRUGS (6)
  1. FLUTICASONE PROPIONATE. [Concomitant]
     Active Substance: FLUTICASONE PROPIONATE
  2. SALMETEROL [Concomitant]
     Active Substance: SALMETEROL
  3. BENICAR [Concomitant]
     Active Substance: OLMESARTAN MEDOXOMIL
  4. VALSARTAN. [Suspect]
     Active Substance: VALSARTAN
     Indication: HYPERTENSION
     Dates: start: 20040620, end: 20170801
  5. NOSE SPRAY [Concomitant]
  6. CAPECITABINE. [Concomitant]
     Active Substance: CAPECITABINE

REACTIONS (1)
  - Breast cancer stage II [None]

NARRATIVE: CASE EVENT DATE: 20171122
